FAERS Safety Report 9940582 (Version 2)
Quarter: 2014Q1

REPORT INFORMATION
  Report Type: Spontaneous
  Country: US (occurrence: US)
  Receive Date: 20140303
  Receipt Date: 20140318
  Transmission Date: 20141002
  Serious: No
  Sender: FDA-Public Use
  Company Number: US-BAYER-2014-031917

PATIENT
  Age: 23 Year
  Sex: Female
  Weight: 59 kg

DRUGS (2)
  1. MIDOL TEEN FORMULA - MAXIMUM STRENGTH [Suspect]
     Dosage: 2 DF, PRN
     Route: 048
     Dates: end: 20140223
  2. MIDOL MENSTRUAL COMPLETE FORMULA [Suspect]
     Dosage: 2 DF, PRN
     Route: 048
     Dates: end: 20140224

REACTIONS (1)
  - Drug ineffective [None]
